FAERS Safety Report 4979555-4 (Version None)
Quarter: 2006Q2

REPORT INFORMATION
  Report Type: 
  Country: None (occurrence: None)
  Receive Date: 20060418
  Receipt Date: 20060403
  Transmission Date: 20061013
  Serious: Yes (Hospitalization, Other)
  Sender: FDA-Public Use
  Company Number: A-JP2006-11908

PATIENT
  Age: 24 Year
  Sex: Male
  Weight: 58.1 kg

DRUGS (16)
  1. TRACLEER [Suspect]
     Indication: PULMONARY HYPERTENSION
     Dosage: SEE IMAGE
     Route: 048
     Dates: start: 20051017, end: 20051017
  2. TRACLEER [Suspect]
     Indication: PULMONARY HYPERTENSION
     Dosage: SEE IMAGE
     Route: 048
     Dates: start: 20051020, end: 20051026
  3. TRACLEER [Suspect]
     Indication: PULMONARY HYPERTENSION
     Dosage: SEE IMAGE
     Route: 048
     Dates: start: 20051027, end: 20051106
  4. TRACLEER [Suspect]
     Indication: PULMONARY HYPERTENSION
     Dosage: SEE IMAGE
     Route: 048
     Dates: start: 20051107, end: 20060309
  5. TRACLEER [Suspect]
     Indication: PULMONARY HYPERTENSION
     Dosage: SEE IMAGE
     Route: 048
     Dates: start: 20060310, end: 20060324
  6. ISONIAZID [Suspect]
     Indication: EXPOSURE TO COMMUNICABLE DISEASE
     Dates: start: 20051228, end: 20060315
  7. BERAPROST SODIUM (BERAPROST SODIUM) [Suspect]
  8. OXYGEN (OXYGEN) [Concomitant]
  9. PYRIDOXAL PHOSPHATE (PYRIDOXAL PHOSPHATE) [Concomitant]
  10. WARFARIN SODIUM [Concomitant]
  11. OSELTAMIVIR (OSELTAMIVAR) [Concomitant]
  12. ACETAMINOPHEN [Concomitant]
  13. RABEPRAZOLE SODIUM [Concomitant]
  14. BUNAZOSIN HYDROCHLORIDE (BUNAZOSIN HYDROCHLORIDE) [Concomitant]
  15. SULTAMICILLIN (SULTAMICILLIN) [Concomitant]
  16. CEFOTIAM (CEFOTIAM) [Concomitant]

REACTIONS (8)
  - ALANINE AMINOTRANSFERASE INCREASED [None]
  - ASPARTATE AMINOTRANSFERASE INCREASED [None]
  - BLOOD ALKALINE PHOSPHATASE INCREASED [None]
  - GAMMA-GLUTAMYLTRANSFERASE INCREASED [None]
  - HAEMOPTYSIS [None]
  - HEADACHE [None]
  - HOT FLUSH [None]
  - INFLUENZA [None]
